FAERS Safety Report 4599742-7 (Version None)
Quarter: 2005Q1

REPORT INFORMATION
  Report Type: 
  Country: None (occurrence: None)
  Receive Date: 20050304
  Receipt Date: 20050304
  Transmission Date: 20050727
  Serious: Yes (Hospitalization)
  Sender: FDA-Public Use
  Company Number: None

PATIENT
  Age: 69 Year
  Sex: Female
  Weight: 80.45 kg

DRUGS (2)
  1. FLUOROURACIL [Suspect]
     Indication: ANAL CANCER
     Dosage: 1770MG   DAYS 1-4   INTRAVENOU
     Route: 042
     Dates: start: 20050110, end: 20050114
  2. MITOMYCIN-C       10MG/M2 [Suspect]
     Indication: ANAL CANCER
     Dosage: 17.7MG   DAY 1   INTRAVENOU
     Route: 042
     Dates: start: 20050110, end: 20050114

REACTIONS (7)
  - ABDOMINAL PAIN [None]
  - CYTOMEGALOVIRUS INFECTION [None]
  - DIARRHOEA [None]
  - HYPOVOLAEMIA [None]
  - INTERNATIONAL NORMALISED RATIO INCREASED [None]
  - NAUSEA [None]
  - VOMITING [None]
